FAERS Safety Report 8200204-6 (Version None)
Quarter: 2012Q1

REPORT INFORMATION
  Report Type: 
  Country: None (occurrence: None)
  Receive Date: 20120312
  Receipt Date: 20120306
  Transmission Date: 20120608
  Serious: Yes (Hospitalization)
  Sender: FDA-Public Use
  Company Number: US-PFIZER INC-2012060106

PATIENT
  Sex: Female

DRUGS (4)
  1. VESICARE [Suspect]
     Dosage: UNK
  2. TOVIAZ [Suspect]
     Indication: URINARY TRACT INFECTION
  3. TOVIAZ [Suspect]
     Indication: HYPERTONIC BLADDER
     Dosage: UNK
     Dates: start: 20120303, end: 20120305
  4. BACTRIM [Concomitant]
     Dosage: UNK

REACTIONS (5)
  - DRUG INEFFECTIVE [None]
  - GASTROINTESTINAL DISORDER [None]
  - ABDOMINAL PAIN UPPER [None]
  - NAUSEA [None]
  - POLLAKIURIA [None]
